FAERS Safety Report 8186425-X (Version None)
Quarter: 2012Q1

REPORT INFORMATION
  Report Type: 
  Country: None (occurrence: None)
  Receive Date: 20120305
  Receipt Date: 20120305
  Transmission Date: 20120608
  Serious: No
  Sender: FDA-Public Use
  Company Number: None

PATIENT
  Sex: Male
  Weight: 92.4431 kg

DRUGS (2)
  1. FONDAPARINUX SODIUM [Suspect]
     Indication: DEEP VEIN THROMBOSIS
     Dates: start: 20101021, end: 20110411
  2. FONDAPARINUX SODIUM [Suspect]
     Indication: BLOOD DISORDER
     Dates: start: 20101021, end: 20110411

REACTIONS (3)
  - CONDITION AGGRAVATED [None]
  - THROMBOSIS [None]
  - PAIN IN EXTREMITY [None]
